FAERS Safety Report 8127644-8 (Version None)
Quarter: 2012Q1

REPORT INFORMATION
  Report Type: 
  Country: None (occurrence: None)
  Receive Date: 20120210
  Receipt Date: 20120130
  Transmission Date: 20120608
  Serious: Yes (Hospitalization)
  Sender: FDA-Public Use
  Company Number: JP-NOVOPROD-344007

PATIENT
  Age: 69 Year
  Sex: Female
  Weight: 76 kg

DRUGS (8)
  1. VICTOZA [Suspect]
     Indication: TYPE 2 DIABETES MELLITUS
     Dosage: 0.9 MG, QD
     Route: 058
     Dates: start: 20101101
  2. LOSARTAN POTASSIUM AND HYDROCHLOROTHIAZIDE [Concomitant]
     Dosage: 1 TAB, QD
     Route: 048
  3. LIPIDIL [Concomitant]
     Route: 048
  4. METFORMIN HCL [Concomitant]
     Dosage: 2250 MG, QD
     Route: 048
  5. URITOS [Concomitant]
     Dosage: 0.2 MG, UNK
     Route: 048
  6. LANSOPRAZOLE [Concomitant]
     Dosage: 1.5 MG, QD
     Route: 048
  7. ADVAIR DISKUS 100/50 [Concomitant]
     Dosage: 2BL/IH
  8. AMARYL [Concomitant]
     Dosage: 0.5 MG, QD
     Route: 048

REACTIONS (1)
  - INJECTION SITE CELLULITIS [None]
